FAERS Safety Report 5303515-7 (Version None)
Quarter: 2007Q2

REPORT INFORMATION
  Report Type: 
  Country: None (occurrence: None)
  Receive Date: 20070420
  Receipt Date: 20070413
  Transmission Date: 20071010
  Serious: Yes (Life-Threatening, Hospitalization)
  Sender: FDA-Public Use
  Company Number: GB-PFIZER INC-2007029927

PATIENT
  Age: 60 Year
  Sex: Female
  Weight: 52 kg

DRUGS (2)
  1. PREGABALIN [Suspect]
     Indication: CHEST PAIN
     Route: 048
     Dates: end: 20051108
  2. PREGABALIN [Suspect]
     Indication: BACK PAIN

REACTIONS (1)
  - PNEUMONIA [None]
